FAERS Safety Report 6779480-2 (Version None)
Quarter: 2010Q2

REPORT INFORMATION
  Report Type: 
  Country: None (occurrence: None)
  Receive Date: 20100618
  Receipt Date: 20100608
  Transmission Date: 20101027
  Serious: Yes (Hospitalization)
  Sender: FDA-Public Use
  Company Number: GXKR2010CA06320

PATIENT
  Age: 58 Year
  Sex: Female

DRUGS (10)
  1. QUETIAPINE (NGX) [Suspect]
     Dosage: 50 MG, TID
     Route: 065
  2. QUETIAPINE (NGX) [Suspect]
     Dosage: 200 MG, QHS
  3. CITALOPRAM HYDROBROMIDE [Suspect]
     Dosage: 60 MG, QD
     Route: 065
  4. HYDROCHLOROTHIAZIDE [Suspect]
     Dosage: 25 MG, QD
  5. CLONAZEPAM [Concomitant]
     Dosage: 1 MG, TID
     Route: 065
  6. ACAMPROSATE [Concomitant]
     Dosage: 333 MG, TID
     Route: 065
  7. ATENOLOL [Concomitant]
     Dosage: 25 MG, BID
     Route: 065
  8. RANITIDINE [Concomitant]
     Dosage: 150 MG, QD
     Route: 065
  9. MIRTAZAPINE [Concomitant]
     Dosage: 30 MG, QHS
     Route: 065
  10. ROSUVASTATIN [Concomitant]
     Dosage: 10 MG, QD
     Route: 065

REACTIONS (10)
  - ASTHENIA [None]
  - CARDIOVERSION [None]
  - ELECTROCARDIOGRAM QT PROLONGED [None]
  - HYPERHIDROSIS [None]
  - HYPOKALAEMIA [None]
  - MALAISE [None]
  - NAUSEA [None]
  - PACEMAKER GENERATED RHYTHM [None]
  - TORSADE DE POINTES [None]
  - VENTRICULAR FIBRILLATION [None]
